FAERS Safety Report 6516903-8 (Version None)
Quarter: 2009Q4

REPORT INFORMATION
  Report Type: 
  Country: None (occurrence: None)
  Receive Date: 20091223
  Receipt Date: 20090914
  Transmission Date: 20100525
  Serious: Yes (Other)
  Sender: FDA-Public Use
  Company Number: US-PFIZER INC-2009311522

PATIENT
  Sex: Female
  Weight: 61.224 kg

DRUGS (3)
  1. NEURONTIN [Suspect]
     Indication: MIGRAINE
     Dosage: 800 MG, 4 TO 5 TIMES A DAY
     Route: 048
     Dates: end: 20090912
  2. NEURONTIN [Suspect]
     Indication: PARTIAL SEIZURES
  3. NEURONTIN [Suspect]
     Indication: NEUROPATHY PERIPHERAL

REACTIONS (5)
  - BURNING SENSATION [None]
  - HEADACHE [None]
  - MIGRAINE [None]
  - NASAL CONGESTION [None]
  - PARTIAL SEIZURES [None]
